FAERS Safety Report 7718036-1 (Version None)
Quarter: 2011Q3

REPORT INFORMATION
  Report Type: 
  Country: None (occurrence: None)
  Receive Date: 20110830
  Receipt Date: 20110705
  Transmission Date: 20111222
  Serious: Yes (Other)
  Sender: FDA-Public Use
  Company Number: US-AMGEN-USASP2011005204

PATIENT
  Age: 64 Year
  Sex: Male
  Weight: 80.9 kg

DRUGS (2)
  1. CORTICOSTEROID NOS [Concomitant]
  2. NPLATE [Suspect]
     Indication: IDIOPATHIC THROMBOCYTOPENIC PURPURA
     Dosage: 2 A?G/KG, UNK
     Dates: start: 20100728, end: 20100915

REACTIONS (1)
  - DRUG INEFFECTIVE [None]
